FAERS Safety Report 10172100 (Version 1)
Quarter: 2014Q2

REPORT INFORMATION
  Report Type: Report from Study
  Country: PK (occurrence: PK)
  Receive Date: 20140515
  Receipt Date: 20140515
  Transmission Date: 20141212
  Serious: Yes (Other)
  Sender: FDA-Public Use
  Company Number: PHHY2014PK057621

PATIENT
  Age: 66 Year
  Sex: Female

DRUGS (2)
  1. ACLASTA [Suspect]
     Indication: OSTEOPOROSIS
     Dosage: UNK UKN, UNK
     Route: 042
  2. ACLASTA [Suspect]
     Dosage: 5 MG PER 100 ML, UNK
     Route: 042
     Dates: start: 20110110

REACTIONS (1)
  - Lower limb fracture [Recovering/Resolving]
